FAERS Safety Report 18848054 (Version 2)
Quarter: 2021Q1

REPORT INFORMATION
  Report Type: Spontaneous
  Country: US (occurrence: US)
  Receive Date: 20210204
  Receipt Date: 20210302
  Transmission Date: 20210419
  Serious: No
  Sender: FDA-Public Use
  Company Number: US-ASTRAZENECA-2021A025311

PATIENT
  Age: 19174 Day
  Sex: Male
  Weight: 104.3 kg

DRUGS (1)
  1. BYDUREON BCISE [Suspect]
     Active Substance: EXENATIDE
     Indication: DIABETES MELLITUS
     Route: 058
     Dates: start: 2018

REACTIONS (5)
  - Product dose omission issue [Unknown]
  - Device leakage [Unknown]
  - Needle issue [Unknown]
  - Injection site mass [Unknown]
  - Device malfunction [Unknown]

NARRATIVE: CASE EVENT DATE: 20210110
